FAERS Safety Report 18686720 (Version 1)
Quarter: 2020Q4

REPORT INFORMATION
  Report Type: Spontaneous
  Country: US (occurrence: US)
  Receive Date: 20201230
  Receipt Date: 20201230
  Transmission Date: 20210114
  Serious: No
  Sender: FDA-Public Use
  Company Number: US-GILEAD-2020-0510742

PATIENT
  Sex: Female

DRUGS (17)
  1. FLUCONAZOLE. [Concomitant]
     Active Substance: FLUCONAZOLE
  2. VALACYCLOVIR [Concomitant]
     Active Substance: VALACYCLOVIR HYDROCHLORIDE
  3. SOFOSBUVIR;VELPATASVIR [Suspect]
     Active Substance: SOFOSBUVIR\VELPATASVIR
     Indication: CHRONIC HEPATITIS C
     Dosage: 1 DOSAGE FORM, QD
     Route: 048
  4. ENSURE [NUTRIENTS NOS] [Concomitant]
  5. TRIAMTERENE HCTZ [Concomitant]
     Active Substance: HYDROCHLOROTHIAZIDE\TRIAMTERENE
  6. CHANTIX [Concomitant]
     Active Substance: VARENICLINE TARTRATE
  7. NALTREXONE [Concomitant]
     Active Substance: NALTREXONE
  8. DSS [Concomitant]
     Active Substance: DEXTRAN SULFATE SODIUM
  9. ROPINIROLE. [Concomitant]
     Active Substance: ROPINIROLE
  10. SINGULAIR [Concomitant]
     Active Substance: MONTELUKAST SODIUM
  11. TOPIRAMATE. [Concomitant]
     Active Substance: TOPIRAMATE
  12. LORATADINE. [Concomitant]
     Active Substance: LORATADINE
  13. OMEPRAZOLE. [Concomitant]
     Active Substance: OMEPRAZOLE
  14. TRAZODONE [Concomitant]
     Active Substance: TRAZODONE HYDROCHLORIDE
  15. LORAZEPAM. [Concomitant]
     Active Substance: LORAZEPAM
  16. METOPROLOL SUCCINATE. [Concomitant]
     Active Substance: METOPROLOL SUCCINATE
  17. ONDANSETRON [Concomitant]
     Active Substance: ONDANSETRON

REACTIONS (1)
  - Intentional dose omission [Unknown]
